FAERS Safety Report 18502095 (Version 1)
Quarter: 2020Q4

REPORT INFORMATION
  Report Type: Spontaneous
  Country: US (occurrence: US)
  Receive Date: 20201113
  Receipt Date: 20201113
  Transmission Date: 20210114
  Serious: Yes (Disabling, Other)
  Sender: FDA-Public Use
  Company Number: US-009507513-2011USA005358

PATIENT
  Age: 67 Year
  Sex: Male
  Weight: 89.8 kg

DRUGS (23)
  1. PRINIVIL [Suspect]
     Active Substance: LISINOPRIL
     Dosage: 10 MILLIGRAM, QD
     Route: 048
  2. REMERON [Concomitant]
     Active Substance: MIRTAZAPINE
     Dosage: 15 MILLIGRAM, QD
     Route: 048
  3. ASPIRIN. [Concomitant]
     Active Substance: ASPIRIN
     Dosage: 81 MILLIGRAM, QD
     Route: 048
  4. BUDESONIDE. [Suspect]
     Active Substance: BUDESONIDE
     Indication: BRONCHITIS
     Dosage: 2ML/0.5MG, BID
     Route: 055
     Dates: start: 20170612, end: 2017
  5. ALPRAZOLAM. [Concomitant]
     Active Substance: ALPRAZOLAM
     Dosage: 0.5MG AS REQUIRED
     Route: 048
  6. POTASSIUM CHLORIDE. [Concomitant]
     Active Substance: POTASSIUM CHLORIDE
     Dosage: 10 MILLIEQUIVALENT, BID
     Route: 048
  7. LASIX [Concomitant]
     Active Substance: FUROSEMIDE
     Dosage: 40 MILLIGRAM, QD
     Route: 048
  8. OLAPARIB. [Suspect]
     Active Substance: OLAPARIB
     Indication: PROSTATE CANCER
     Dosage: 800 MILLIGRAM, QD
     Route: 048
     Dates: start: 20170731, end: 20170801
  9. NORCO [Concomitant]
     Active Substance: ACETAMINOPHEN\HYDROCODONE BITARTRATE
     Indication: PAIN
     Dosage: 5/325 MG, AS REQUIRED
     Route: 048
  10. CRESTOR [Suspect]
     Active Substance: ROSUVASTATIN CALCIUM
     Dosage: 20 MILLIGRAM, QD
     Route: 048
  11. PROAIR HFA [Concomitant]
     Active Substance: ALBUTEROL SULFATE
     Dosage: TAKES 2 PUFFS, EVERY FOUR HOURS
     Route: 055
  12. AVODART [Concomitant]
     Active Substance: DUTASTERIDE
     Indication: PROSTATOMEGALY
     Dosage: 0.5 MILLIGRAM, QD
     Route: 048
  13. HUMALOG [Concomitant]
     Active Substance: INSULIN LISPRO
     Dosage: 30 BEFORE MEALS
     Route: 058
  14. OMEPRAZOLE. [Suspect]
     Active Substance: OMEPRAZOLE
     Dosage: 20 MILLIGRAM, QD
     Route: 048
  15. AMOXICILLIN. [Concomitant]
     Active Substance: AMOXICILLIN
     Indication: GINGIVAL DISORDER
     Dosage: 500 MG, UNKNOWN
     Route: 048
  16. LUPRON [Concomitant]
     Active Substance: LEUPROLIDE ACETATE
     Dosage: 11.25 MG, QM3
     Route: 030
  17. OLAPARIB. [Suspect]
     Active Substance: OLAPARIB
     Dosage: 600 MILLIGRAM, QD
     Route: 048
     Dates: start: 20170814, end: 20170831
  18. TRESIBA [Concomitant]
     Active Substance: INSULIN DEGLUDEC
     Indication: ILL-DEFINED DISORDER
     Dosage: 20 DAILY
     Route: 058
  19. AZELASTINE HYDROCHLORIDE. [Concomitant]
     Active Substance: AZELASTINE HYDROCHLORIDE
     Indication: RHINITIS ALLERGIC
     Dosage: DAILY, TAKES 2 SPRAYS IN EACH NOSTRIL
     Route: 045
  20. OLAPARIB. [Suspect]
     Active Substance: OLAPARIB
     Dosage: 800 MILLIGRAM, QD
     Route: 048
     Dates: start: 20170805, end: 20170810
  21. OLAPARIB. [Suspect]
     Active Substance: OLAPARIB
     Dosage: 400 MILLIGRAM, QD
     Route: 048
     Dates: start: 20170831
  22. SOTALOL. [Concomitant]
     Active Substance: SOTALOL
     Dosage: 80 MILLIGRAM, QD
     Route: 048
  23. FLONASE [Concomitant]
     Active Substance: FLUTICASONE PROPIONATE
     Dosage: TAKES 2 SPRAYS IN EACH NOSTRIL
     Route: 045

REACTIONS (23)
  - Impaired gastric emptying [Unknown]
  - Muscular weakness [Recovering/Resolving]
  - Blood glucose increased [Not Recovered/Not Resolved]
  - Myalgia [Recovered/Resolved]
  - Paronychia [Unknown]
  - Onychomycosis [Unknown]
  - Pyrexia [Unknown]
  - Diarrhoea [Unknown]
  - Influenza [Unknown]
  - Cushing^s syndrome [Unknown]
  - Gait disturbance [Unknown]
  - Neuropathy peripheral [Unknown]
  - Gait inability [Recovered/Resolved]
  - Listless [Unknown]
  - Hypertension [Unknown]
  - Spinal osteoarthritis [Unknown]
  - Peroneal nerve palsy [Unknown]
  - Glaucoma [Unknown]
  - Type 1 diabetes mellitus [Not Recovered/Not Resolved]
  - Off label use [Not Recovered/Not Resolved]
  - Product use in unapproved indication [Not Recovered/Not Resolved]
  - Cardiac sarcoidosis [Unknown]
  - Fatigue [Unknown]

NARRATIVE: CASE EVENT DATE: 2013
